FAERS Safety Report 4386517-7 (Version None)
Quarter: 2004Q2

REPORT INFORMATION
  Report Type: 
  Country: None (occurrence: None)
  Receive Date: 20040623
  Receipt Date: 20040607
  Transmission Date: 20050107
  Serious: Yes (Other)
  Sender: FDA-Public Use
  Company Number: 8006457

PATIENT
  Age: 62 Year
  Sex: Female

DRUGS (15)
  1. LORTAB [Suspect]
  2. DURAGESIC [Suspect]
     Dosage: TRD
     Dates: start: 20040406
  3. SOMA [Suspect]
  4. LEVAQUIN [Concomitant]
  5. NEURONTIN [Concomitant]
  6. BUSPAR [Concomitant]
  7. EVISTA [Concomitant]
  8. FOSAMAX [Concomitant]
  9. TOPROL-XL [Concomitant]
  10. EFFEXOR XR [Concomitant]
  11. HUMALOG [Concomitant]
  12. PLAVIX [Concomitant]
  13. NORVASC [Concomitant]
  14. LIPITOR [Concomitant]
  15. FOLTX [Concomitant]

REACTIONS (3)
  - COMA [None]
  - INCOHERENT [None]
  - PHARMACEUTICAL PRODUCT COMPLAINT [None]
